FAERS Safety Report 15515856 (Version 2)
Quarter: 2018Q4

REPORT INFORMATION
  Report Type: Spontaneous
  Country: DE (occurrence: DE)
  Receive Date: 20181017
  Receipt Date: 20181205
  Transmission Date: 20190205
  Serious: Yes (Other)
  Sender: FDA-Public Use
  Company Number: DE-AUROBINDO-AUR-APL-2018-050551

PATIENT
  Age: 51 Year
  Sex: Female

DRUGS (7)
  1. ESTRADIOL. [Suspect]
     Active Substance: ESTRADIOL
     Indication: HORMONE REPLACEMENT THERAPY
     Dosage: 1 DOSAGE FORM, ONCE A DAY, GEL, 1 PUFF DAILY (UNKNOWN, 1 D), PKGID=8049768
     Route: 062
     Dates: start: 201508, end: 201510
  2. PROGESTERONE. [Suspect]
     Active Substance: PROGESTERONE
     Dosage: 100 MILLIGRAM, ONCE A DAY (QD, 1 IN 1 D)
     Route: 048
     Dates: start: 201612, end: 201703
  3. SERTRALINE HYDROCHLORIDE. [Concomitant]
     Active Substance: SERTRALINE HYDROCHLORIDE
     Indication: PRODUCT USED FOR UNKNOWN INDICATION
     Dosage: UNK
     Route: 065
  4. VALSARTAN. [Suspect]
     Active Substance: VALSARTAN
     Indication: BLOOD PRESSURE MEASUREMENT
     Dosage: 80 MG, QD
     Route: 048
     Dates: start: 20180911
  5. LEVOTHYROXINE SODIUM. [Concomitant]
     Active Substance: LEVOTHYROXINE SODIUM
     Indication: PRODUCT USED FOR UNKNOWN INDICATION
     Dosage: UNK
     Route: 065
  6. PROGESTERONE. [Suspect]
     Active Substance: PROGESTERONE
     Indication: HORMONE REPLACEMENT THERAPY
     Dosage: 100 MILLIGRAM, ONCE A DAY (QD, 1 IN 1 D)
     Route: 048
     Dates: start: 201508, end: 201510
  7. ESTRADIOL. [Suspect]
     Active Substance: ESTRADIOL
     Dosage: 1 DOSAGE FORM, ONCE A DAY, GEL, 1 PUFF DAILY (UNKNOWN, 1 D)
     Route: 062
     Dates: start: 201612, end: 201703

REACTIONS (4)
  - Product odour abnormal [Unknown]
  - Product taste abnormal [Unknown]
  - Retinal vein occlusion [Recovered/Resolved]
  - Ophthalmic vein thrombosis [Unknown]

NARRATIVE: CASE EVENT DATE: 201704
